FAERS Safety Report 9530662 (Version 3)
Quarter: 2013Q4

REPORT INFORMATION
  Report Type: Report from Study
  Country: CO (occurrence: CO)
  Receive Date: 20130918
  Receipt Date: 20131111
  Transmission Date: 20140711
  Serious: Yes (Death, Hospitalization)
  Sender: FDA-Public Use
  Company Number: CO-ROCHE-1266340

PATIENT
  Age: 41 Year
  Sex: Female

DRUGS (1)
  1. MIRCERA [Suspect]
     Indication: NEPHROGENIC ANAEMIA
     Route: 058
     Dates: start: 20130404

REACTIONS (4)
  - Thrombocytopenia [Fatal]
  - Haemorrhage [Fatal]
  - Bacteraemia [Fatal]
  - Cerebrovascular disorder [Fatal]
